FAERS Safety Report 25499687 (Version 1)
Quarter: 2025Q3

REPORT INFORMATION
  Report Type: Spontaneous
  Country: US (occurrence: US)
  Receive Date: 20250701
  Receipt Date: 20250701
  Transmission Date: 20251020
  Serious: Yes (Other)
  Sender: INCYTE
  Company Number: US-EVENT-003323

PATIENT

DRUGS (1)
  1. ZYNYZ [Suspect]
     Active Substance: RETIFANLIMAB-DLWR
     Indication: Neuroendocrine carcinoma of the skin
     Route: 065

REACTIONS (2)
  - Neuroendocrine carcinoma of the skin [Unknown]
  - Disease progression [Unknown]
